FAERS Safety Report 18714907 (Version 2)
Quarter: 2021Q1

REPORT INFORMATION
  Report Type: Report from Study
  Country: ES (occurrence: ES)
  Receive Date: 20210108
  Receipt Date: 20210112
  Transmission Date: 20210419
  Serious: Yes (Hospitalization)
  Sender: FDA-Public Use
  Company Number: ES-ROCHE-2745223

PATIENT
  Age: 31 Year
  Sex: Female
  Weight: 85 kg

DRUGS (2)
  1. CABOMETYX [Suspect]
     Active Substance: CABOZANTINIB S-MALATE
     Indication: NEUROENDOCRINE TUMOUR
     Dosage: ON 23/DEC/2020, RECEIVED MOST RECENT DOSE OF CABOZANTINIB S?MALATE 40 MG
     Route: 048
     Dates: start: 20201202
  2. ATEZOLIZUMAB. [Suspect]
     Active Substance: ATEZOLIZUMAB
     Indication: NEUROENDOCRINE TUMOUR
     Dosage: ON 23/DEC/2020, RECEIVED MOST RECENT DOSE OF ATEZOLIZUMAB 1200 MG.
     Route: 041
     Dates: start: 20201202

REACTIONS (1)
  - Enteritis [Recovered/Resolved]

NARRATIVE: CASE EVENT DATE: 20210101
